FAERS Safety Report 6581294-3 (Version None)
Quarter: 2010Q1

REPORT INFORMATION
  Report Type: 
  Country: None (occurrence: None)
  Receive Date: 20100203
  Receipt Date: 20100118
  Transmission Date: 20100710
  Serious: Yes (Death)
  Sender: FDA-Public Use
  Company Number: APP201000046

PATIENT
  Age: 39 Year
  Sex: Male

DRUGS (6)
  1. DEXAMETHASONE SODIUM PHOSPHATE [Suspect]
     Indication: SPINAL CORD COMPRESSION
     Dosage: UNK, UNK, UNK
  2. PIPERACILLIN-TAZO-BACTRAM [Concomitant]
  3. CIPROFLOXACIN [Concomitant]
  4. ACYCLOVIR [Concomitant]
  5. AMPICILLIN [Concomitant]
  6. CEFEPIME [Concomitant]

REACTIONS (17)
  - ALANINE AMINOTRANSFERASE INCREASED [None]
  - ASPARTATE AMINOTRANSFERASE INCREASED [None]
  - BIOPSY SKIN ABNORMAL [None]
  - BLOOD ALBUMIN DECREASED [None]
  - CEREBRAL VENTRICLE DILATATION [None]
  - CULTURE URINE POSITIVE [None]
  - HAEMOGLOBIN DECREASED [None]
  - HERPES ZOSTER [None]
  - INTRAVENTRICULAR HAEMORRHAGE [None]
  - KLEBSIELLA INFECTION [None]
  - LEUKOCYTOCLASTIC VASCULITIS [None]
  - MUSCULOSKELETAL STIFFNESS [None]
  - PLATELET COUNT DECREASED [None]
  - PROTEIN TOTAL DECREASED [None]
  - PSEUDOMONAS INFECTION [None]
  - SPUTUM CULTURE POSITIVE [None]
  - STRONGYLOIDIASIS [None]
